FAERS Safety Report 25941433 (Version 2)
Quarter: 2025Q4

REPORT INFORMATION
  Report Type: Spontaneous
  Country: JP (occurrence: JP)
  Receive Date: 20251020
  Receipt Date: 20251024
  Transmission Date: 20260117
  Serious: No
  Sender: NOVARTIS
  Company Number: JP-002147023-NVSJ2023JP013450

PATIENT
  Age: 45 Year
  Sex: Male

DRUGS (3)
  1. KESIMPTA [Suspect]
     Active Substance: OFATUMUMAB
     Indication: Multiple sclerosis
     Dosage: UNK
     Route: 058
  2. CALCIPOTRIENE [Concomitant]
     Active Substance: CALCIPOTRIENE
     Indication: Psoriasis
     Dosage: UNK
     Route: 061
  3. CALCIPOTRIENE [Concomitant]
     Active Substance: CALCIPOTRIENE
     Indication: Psoriasis
     Dosage: UNK
     Route: 065

REACTIONS (3)
  - Psoriasis [Recovering/Resolving]
  - Erythema [Recovering/Resolving]
  - Inflammation [Unknown]
